FAERS Safety Report 6871971-9 (Version None)
Quarter: 2010Q3

REPORT INFORMATION
  Report Type: 
  Country: None (occurrence: None)
  Receive Date: 20100723
  Receipt Date: 20100720
  Transmission Date: 20110219
  Serious: Yes (Other)
  Sender: FDA-Public Use
  Company Number: US-AMGEN-KDC425763

PATIENT
  Age: 65 Year
  Sex: Male
  Weight: 93.2 kg

DRUGS (7)
  1. NEULASTA [Suspect]
     Indication: LYMPHOMA
     Route: 058
     Dates: start: 20080610, end: 20080925
  2. VELCADE [Suspect]
     Route: 042
     Dates: start: 20080610, end: 20080925
  3. RITUXIMAB [Suspect]
     Route: 042
     Dates: start: 20080610, end: 20080922
  4. CYCLOPHOSPHAMIDE [Suspect]
     Route: 042
     Dates: start: 20080610, end: 20080925
  5. DOXORUBICIN HCL [Suspect]
     Route: 042
     Dates: start: 20080610, end: 20080923
  6. VINCRISTINE [Suspect]
     Route: 042
     Dates: start: 20080610, end: 20080925
  7. DEXAMETHASONE [Suspect]
     Route: 065
     Dates: start: 20080610, end: 20080925

REACTIONS (1)
  - LYMPHOPENIA [None]
